FAERS Safety Report 7469589-2 (Version None)
Quarter: 2011Q2

REPORT INFORMATION
  Report Type: 
  Country: None (occurrence: None)
  Receive Date: 20110429
  Receipt Date: 20110415
  Transmission Date: 20111010
  Serious: Yes (Hospitalization)
  Sender: FDA-Public Use
  Company Number: 1000020293

PATIENT
  Age: 83 Year
  Sex: Female

DRUGS (9)
  1. INSULATARD (HUMAN INSULIN) (HUMAN INSULIN) [Concomitant]
  2. NOVONORM (REPAGLINIDE) (REPAGLINIDE) [Concomitant]
  3. EXFORGE (AMLODIPINE, VALSARTAN) (AMLODIPINE, VALSARTAN) [Concomitant]
  4. TARKA [Suspect]
     Indication: HYPERTENSION
     Dosage: ORAL
     Route: 048
     Dates: start: 20110103
  5. NEBIVOLOL HCL [Suspect]
     Indication: HYPERTENSION
     Dosage: ORAL
     Route: 048
  6. LEVOTHYROX (LEVOTHROXINE SODIUM) (LEVOTHYROXIN SODIUM) [Concomitant]
  7. CYMBALTA (DULOXETINE HYDROCHLORIDE) (DULOXETINE HYDROCHLORIDE) [Concomitant]
  8. LYRICA [Concomitant]
  9. CRESTOR [Concomitant]

REACTIONS (4)
  - DYSPNOEA [None]
  - SINUS ARRHYTHMIA [None]
  - ATRIAL FIBRILLATION [None]
  - OEDEMA PERIPHERAL [None]
